FAERS Safety Report 13947152 (Version 1)
Quarter: 2017Q3

REPORT INFORMATION
  Report Type: Spontaneous
  Country: FR (occurrence: FR)
  Receive Date: 20170907
  Receipt Date: 20170907
  Transmission Date: 20171128
  Serious: Yes (Hospitalization)
  Sender: FDA-Public Use
  Company Number: FR-BAXTER-2017BAX031472

PATIENT
  Age: 27 Year
  Sex: Female

DRUGS (12)
  1. PREDNISONE. [Concomitant]
     Active Substance: PREDNISONE
     Indication: PRODUCT USED FOR UNKNOWN INDICATION
     Route: 065
  2. LUTERAN [Concomitant]
     Active Substance: CHLORMADINONE ACETATE
     Indication: PRODUCT USED FOR UNKNOWN INDICATION
     Route: 065
  3. ENDOXAN 1000 MG, POUDRE POUR SOLUTION INJECTABLE [Suspect]
     Active Substance: CYCLOPHOSPHAMIDE
     Indication: GLOMERULONEPHRITIS
     Dosage: FIRST CYCLE
     Route: 042
     Dates: start: 2017, end: 2017
  4. ENDOXAN 1000 MG, POUDRE POUR SOLUTION INJECTABLE [Suspect]
     Active Substance: CYCLOPHOSPHAMIDE
     Indication: GLOMERULONEPHRITIS PROLIFERATIVE
     Dosage: SECOND CYCLE, OVER 2 HOURS
     Route: 042
     Dates: start: 20170811, end: 20170811
  5. MESNA EG [Suspect]
     Active Substance: MESNA
     Indication: CHEMOTHERAPY UROTHELIAL TOXICITY ATTENUATION
     Dosage: FIRST CYCLE
     Route: 042
     Dates: start: 2017, end: 2017
  6. MESNA EG [Suspect]
     Active Substance: MESNA
     Dosage: SECOND CYCLE, OVER 6 HOURS (STARTING 1 HOUR BEFORE ENDOXAN UNTIL 3 HOURS AFTER ENDOXAN ADMINISTRATIO
     Route: 042
     Dates: start: 20170811, end: 20170811
  7. CEFTRIAXONE. [Concomitant]
     Active Substance: CEFTRIAXONE
     Indication: PRODUCT USED FOR UNKNOWN INDICATION
     Dosage: STOPPED AFTER 24 HOURS DUE TO ABSENCE OF INFECTIOUS ORIGIN
     Route: 065
     Dates: start: 201708, end: 201708
  8. PARACETAMOL [Suspect]
     Active Substance: ACETAMINOPHEN
     Indication: PREMEDICATION
     Route: 065
     Dates: start: 20170811, end: 20170811
  9. PLAQUENIL [Concomitant]
     Active Substance: HYDROXYCHLOROQUINE SULFATE
     Indication: PRODUCT USED FOR UNKNOWN INDICATION
     Route: 065
  10. ONDANSETRON [Suspect]
     Active Substance: ONDANSETRON
     Indication: ANTIEMETIC SUPPORTIVE CARE
     Dosage: FIRST CYCLE
     Route: 048
     Dates: start: 2017, end: 2017
  11. ONDANSETRON [Suspect]
     Active Substance: ONDANSETRON
     Dosage: SECOND CYCLE
     Route: 048
     Dates: start: 20170811, end: 20170811
  12. CALCIDOSE VITAMINE D3 [Concomitant]
     Active Substance: CALCIUM\CHOLECALCIFEROL
     Indication: PRODUCT USED FOR UNKNOWN INDICATION
     Route: 065

REACTIONS (6)
  - Erythema [Recovered/Resolved]
  - Chills [Unknown]
  - Pyrexia [Recovered/Resolved]
  - Acute kidney injury [Recovered/Resolved]
  - Face oedema [Recovered/Resolved]
  - Inflammation [Unknown]

NARRATIVE: CASE EVENT DATE: 20170811
